FAERS Safety Report 5716963-8 (Version None)
Quarter: 2008Q2

REPORT INFORMATION
  Report Type: 
  Country: None (occurrence: None)
  Receive Date: 20080424
  Receipt Date: 20080417
  Transmission Date: 20081010
  Serious: Yes (Other)
  Sender: FDA-Public Use
  Company Number: US-MERCK-0804USA00426

PATIENT
  Age: 32 Year
  Sex: Female

DRUGS (3)
  1. SINGULAIR [Suspect]
     Indication: ASTHMA
     Route: 048
     Dates: start: 20070830, end: 20080301
  2. ALBUTEROL [Concomitant]
     Route: 065
  3. FLOVENT [Concomitant]
     Route: 065

REACTIONS (6)
  - CONJUNCTIVITIS [None]
  - DYSPNOEA [None]
  - EYE DISORDER [None]
  - MYDRIASIS [None]
  - OCULAR HYPERAEMIA [None]
  - VISION BLURRED [None]
